FAERS Safety Report 5147800-0 (Version None)
Quarter: 2006Q4

REPORT INFORMATION
  Report Type: 
  Country: None (occurrence: None)
  Receive Date: 20061107
  Receipt Date: 20061107
  Transmission Date: 20070319
  Serious: Yes (Death)
  Sender: FDA-Public Use
  Company Number: None

PATIENT
  Sex: Male
  Weight: 95.2554 kg

DRUGS (2)
  1. LAMICTAL [Suspect]
     Indication: MENTAL DISORDER
     Dosage: SEE IMAGE
     Dates: start: 20061018, end: 20061022
  2. LAMICTAL [Suspect]
     Indication: MENTAL DISORDER
     Dosage: SEE IMAGE
     Dates: start: 20061023, end: 20061024

REACTIONS (3)
  - GASTROINTESTINAL HAEMORRHAGE [None]
  - MALLORY-WEISS SYNDROME [None]
  - VOMITING [None]
